FAERS Safety Report 4439771-7 (Version None)
Quarter: 2004Q3

REPORT INFORMATION
  Report Type: 
  Country: None (occurrence: None)
  Receive Date: 20040831
  Receipt Date: 20040818
  Transmission Date: 20050211
  Serious: Yes (Disabling)
  Sender: FDA-Public Use
  Company Number: 2004058043

PATIENT
  Age: 83 Year
  Sex: Male
  Weight: 70 kg

DRUGS (4)
  1. FELDENE [Suspect]
     Indication: MYALGIA
     Dosage: 20 MG (20 MG, 1 IN 1 D), ORAL
     Route: 048
  2. INSULIN [Concomitant]
  3. CAPTOPRIL [Concomitant]
  4. FINASTERIDE [Concomitant]

REACTIONS (2)
  - RENAL FAILURE ACUTE [None]
  - SELF-MEDICATION [None]
